FAERS Safety Report 9422352 (Version 20)
Quarter: 2016Q2

REPORT INFORMATION
  Report Type: Report from Study
  Country: US (occurrence: US)
  Receive Date: 20130726
  Receipt Date: 20160429
  Transmission Date: 20160815
  Serious: Yes (Hospitalization, Other)
  Sender: FDA-Public Use
  Company Number: US-SANOFI-AVENTIS-2013SA074797

PATIENT
  Age: 63 Year
  Sex: Female

DRUGS (3)
  1. AUBAGIO [Suspect]
     Active Substance: TERIFLUNOMIDE
     Indication: MULTIPLE SCLEROSIS
     Route: 048
  2. AUBAGIO [Suspect]
     Active Substance: TERIFLUNOMIDE
     Indication: MULTIPLE SCLEROSIS
     Route: 048
     Dates: start: 20130424
  3. AUBAGIO [Suspect]
     Active Substance: TERIFLUNOMIDE
     Indication: MULTIPLE SCLEROSIS
     Route: 048
     Dates: start: 20150124

REACTIONS (23)
  - Facial neuralgia [Not Recovered/Not Resolved]
  - Hip fracture [Recovering/Resolving]
  - Arthralgia [Unknown]
  - Urinary tract disorder [Unknown]
  - Pyrexia [Unknown]
  - Feeling abnormal [Unknown]
  - Limb discomfort [Not Recovered/Not Resolved]
  - Drug dose omission [Unknown]
  - Back disorder [Recovering/Resolving]
  - Fall [Unknown]
  - Trigeminal neuralgia [Recovered/Resolved]
  - Dizziness [Unknown]
  - Muscular weakness [Unknown]
  - Fall [Unknown]
  - Oedema peripheral [Unknown]
  - Urinary tract infection [Recovered/Resolved]
  - Gait disturbance [Unknown]
  - Thyroid disorder [Not Recovered/Not Resolved]
  - Dysphagia [Unknown]
  - Muscle spasms [Recovered/Resolved]
  - Speech disorder [Unknown]
  - Alopecia [Recovered/Resolved]
  - Hypoaesthesia [Unknown]

NARRATIVE: CASE EVENT DATE: 2013
